FAERS Safety Report 7505970-0 (Version None)
Quarter: 2011Q2

REPORT INFORMATION
  Report Type: 
  Country: None (occurrence: None)
  Receive Date: 20110526
  Receipt Date: 20110512
  Transmission Date: 20111010
  Serious: Yes (Other)
  Sender: FDA-Public Use
  Company Number: PHHY2011US40982

PATIENT
  Sex: Female

DRUGS (5)
  1. RECLAST [Suspect]
     Dosage: 5 MG/100ML
     Route: 042
     Dates: start: 20101201
  2. OXYCODONE HCL [Concomitant]
  3. VITAMIN D [Concomitant]
     Dosage: 500 MG
  4. CALCIUM CARBONATE [Concomitant]
     Dosage: 500 MG
  5. RECLAST [Suspect]
     Dosage: 5 MG/100ML
     Route: 042

REACTIONS (5)
  - PAIN IN JAW [None]
  - HEADACHE [None]
  - GINGIVAL BLISTER [None]
  - BONE DISORDER [None]
  - TOOTHACHE [None]
